FAERS Safety Report 5179915-5 (Version None)
Quarter: 2006Q4

REPORT INFORMATION
  Report Type: 
  Country: None (occurrence: None)
  Receive Date: 20061212
  Receipt Date: 20061130
  Transmission Date: 20070319
  Serious: Yes (Hospitalization)
  Sender: FDA-Public Use
  Company Number: 2006147148

PATIENT

DRUGS (1)
  1. LYRICA [Suspect]
     Indication: DIABETIC NEUROPATHY
     Dosage: ORAL
     Route: 048

REACTIONS (3)
  - ARRHYTHMIA [None]
  - IMPLANTABLE DEFIBRILLATOR REPLACEMENT [None]
  - PYREXIA [None]
